FAERS Safety Report 9500449 (Version 2)
Quarter: 2013Q3

REPORT INFORMATION
  Report Type: Spontaneous
  Country: ES (occurrence: ES)
  Receive Date: 20130905
  Receipt Date: 20130913
  Transmission Date: 20140515
  Serious: Yes (Hospitalization)
  Sender: FDA-Public Use
  Company Number: ES-RANBAXY-2013RR-72282

PATIENT
  Age: 78 Year
  Sex: Female

DRUGS (4)
  1. CLINDAMYCIN [Suspect]
     Indication: HIP ARTHROPLASTY
     Dosage: UNK
     Route: 065
  2. CLINDAMYCIN [Suspect]
     Indication: ANTIBIOTIC THERAPY
  3. LEVOFLOXACIN [Suspect]
     Indication: HIP ARTHROPLASTY
     Dosage: UNK
     Route: 065
  4. LEVOFLOXACIN [Suspect]
     Indication: ANTIBIOTIC THERAPY

REACTIONS (2)
  - Acute generalised exanthematous pustulosis [Recovered/Resolved]
  - Pseudolymphoma [Unknown]
